FAERS Safety Report 9160158 (Version 1)
Quarter: 2013Q1

REPORT INFORMATION
  Report Type: Report from Study
  Country: JP (occurrence: JP)
  Receive Date: 20130313
  Receipt Date: 20130313
  Transmission Date: 20140127
  Serious: Yes (Other)
  Sender: FDA-Public Use
  Company Number: JP-PFIZER INC-2013040392

PATIENT
  Age: 55 Year
  Sex: Female
  Weight: 72 kg

DRUGS (13)
  1. FOSPHENYTOIN SODIUM [Suspect]
     Indication: PROPHYLAXIS
     Dosage: 10.4 MG/KG
     Dates: start: 20121217, end: 20121217
  2. FOSPHENYTOIN SODIUM [Suspect]
     Dosage: 5.2 MG/KG
     Dates: start: 20121218
  3. OMEPRAL [Concomitant]
     Indication: PROPHYLAXIS
     Dosage: 40 MG
     Route: 042
     Dates: start: 20121217, end: 20121219
  4. PERDIPINE [Concomitant]
     Indication: HYPERTENSION
     Dosage: 57MG
     Route: 042
     Dates: start: 20121217, end: 20121225
  5. DIPRIVAN [Concomitant]
     Indication: SEDATION
     Dosage: 62 ML
     Route: 042
     Dates: start: 20121217, end: 20121224
  6. TAKEPRON [Concomitant]
     Indication: PROPHYLAXIS
     Dosage: 30 MG
     Route: 048
     Dates: start: 20121220
  7. CEFAZOLIN [Concomitant]
     Indication: PROPHYLAXIS
     Dosage: 2 G
     Route: 042
     Dates: start: 20121218, end: 20121220
  8. PRECEDEX [Concomitant]
     Indication: SEDATION
     Dosage: 29?G
     Route: 042
     Dates: start: 20121218, end: 20121219
  9. ERIL [Concomitant]
     Indication: PROPHYLAXIS
     Dosage: 90 MG
     Dates: start: 20121219
  10. OZAGREL SODIUM [Concomitant]
     Indication: PROPHYLAXIS
     Dosage: 80 MG
     Route: 042
     Dates: start: 20121219, end: 20121220
  11. VANCOMYCIN [Concomitant]
     Indication: PROPHYLAXIS
     Dosage: 2 G
     Route: 042
     Dates: start: 20121224
  12. DEPAKENE [Concomitant]
     Indication: EPILEPSY
     Dosage: 750 MG
     Route: 048
     Dates: start: 20121220
  13. ALEVIATIN [Concomitant]
     Indication: EPILEPSY
     Dosage: 300 MG
     Route: 048
     Dates: start: 20121226, end: 20121227

REACTIONS (2)
  - Alanine aminotransferase increased [Recovering/Resolving]
  - Gamma-glutamyltransferase increased [Recovering/Resolving]
